FAERS Safety Report 25168896 (Version 2)
Quarter: 2025Q2

REPORT INFORMATION
  Report Type: Report from Study
  Country: US (occurrence: US)
  Receive Date: 20250407
  Receipt Date: 20250411
  Transmission Date: 20250717
  Serious: Yes (Hospitalization)
  Sender: JAZZ
  Company Number: US-JAZZ PHARMACEUTICALS-2025-US-008169

PATIENT
  Age: 9 Year
  Sex: Female

DRUGS (15)
  1. EPIDIOLEX [Suspect]
     Active Substance: CANNABIDIOL
     Indication: Lennox-Gastaut syndrome
     Dates: start: 20250325
  2. EPIDIOLEX [Suspect]
     Active Substance: CANNABIDIOL
     Indication: Focal dyscognitive seizures
     Dosage: 3.5 MILLILITER, BID
     Route: 048
  3. EPIDIOLEX [Suspect]
     Active Substance: CANNABIDIOL
     Dosage: 3 MILLILITER, BID
  4. EPIDIOLEX [Suspect]
     Active Substance: CANNABIDIOL
     Dosage: 22.81 MG/KG/DAY
     Route: 048
     Dates: start: 20221105
  5. EPIDIOLEX [Suspect]
     Active Substance: CANNABIDIOL
     Dosage: 3.5 MILLILITER, BID
     Route: 048
     Dates: start: 20221105
  6. FLONASE ALLERGY RELIEF [Concomitant]
     Active Substance: FLUTICASONE PROPIONATE
     Indication: Product used for unknown indication
  7. IRON [Concomitant]
     Active Substance: IRON
     Indication: Product used for unknown indication
  8. KEPPRA [Concomitant]
     Active Substance: LEVETIRACETAM
     Indication: Product used for unknown indication
  9. KLONOPIN [Concomitant]
     Active Substance: CLONAZEPAM
     Indication: Product used for unknown indication
  10. VITAMINS NOS [Concomitant]
     Active Substance: VITAMINS
     Indication: Product used for unknown indication
  11. PEPCID [Concomitant]
     Active Substance: FAMOTIDINE
     Indication: Product used for unknown indication
  12. PREVACID [Concomitant]
     Active Substance: LANSOPRAZOLE
     Indication: Product used for unknown indication
  13. SENNA LEAF [Concomitant]
     Active Substance: SENNA LEAF
     Indication: Product used for unknown indication
  14. VITAMIN C [Concomitant]
     Active Substance: ASCORBIC ACID
     Indication: Product used for unknown indication
  15. VITAMIN D3 GUMMY [Concomitant]
     Indication: Product used for unknown indication

REACTIONS (5)
  - Illness [Unknown]
  - Seizure [Not Recovered/Not Resolved]
  - Product administration interrupted [Unknown]
  - Incorrect dose administered [Unknown]
  - Product dose omission issue [Recovered/Resolved]

NARRATIVE: CASE EVENT DATE: 20250301
